FAERS Safety Report 6137264-2 (Version None)
Quarter: 2009Q1

REPORT INFORMATION
  Report Type: 
  Country: None (occurrence: None)
  Receive Date: 20090330
  Receipt Date: 20090323
  Transmission Date: 20090719
  Serious: Yes (Hospitalization)
  Sender: FDA-Public Use
  Company Number: FR-ASTRAZENECA-2009CG00568

PATIENT
  Age: 56 Year
  Sex: Female

DRUGS (4)
  1. ATACAND [Suspect]
     Route: 048
     Dates: end: 20090218
  2. ALLOPURINOL [Suspect]
     Route: 048
     Dates: start: 20090119, end: 20090218
  3. ART [Suspect]
     Route: 048
     Dates: end: 20090218
  4. TAHOR [Suspect]
     Route: 048
     Dates: end: 20090218

REACTIONS (5)
  - CYTOLYTIC HEPATITIS [None]
  - PYREXIA [None]
  - RASH [None]
  - RENAL FAILURE [None]
  - THROMBOCYTOPENIA [None]
